FAERS Safety Report 5674692-3 (Version None)
Quarter: 2008Q1

REPORT INFORMATION
  Report Type: 
  Country: None (occurrence: None)
  Receive Date: 20080320
  Receipt Date: 20080317
  Transmission Date: 20080703
  Serious: Yes (Disabling)
  Sender: FDA-Public Use
  Company Number: B0511184A

PATIENT
  Age: 37 Year
  Sex: Female

DRUGS (2)
  1. WELLBUTRIN [Suspect]
     Indication: DRUG USE FOR UNKNOWN INDICATION
     Dosage: 150MG TWICE PER DAY
     Route: 065
     Dates: start: 20021210
  2. DESOGESTREL AND ETHINYL ESTRADIOL [Concomitant]
     Dosage: 1TAB PER DAY

REACTIONS (1)
  - SYNCOPE VASOVAGAL [None]
